FAERS Safety Report 7425463-9 (Version None)
Quarter: 2011Q2

REPORT INFORMATION
  Report Type: 
  Country: None (occurrence: None)
  Receive Date: 20110420
  Receipt Date: 20110412
  Transmission Date: 20111010
  Serious: Yes (Hospitalization)
  Sender: FDA-Public Use
  Company Number: US-SANOFI-AVENTIS-2011SA016808

PATIENT
  Age: 25 Year
  Sex: Female
  Weight: 54.5 kg

DRUGS (5)
  1. ALLERGY RELIEF MEDICINE [Suspect]
     Route: 065
  2. MULTI-VITAMINS [Concomitant]
     Indication: ROUTINE HEALTH MAINTENANCE
     Route: 048
  3. ALCOHOL [Suspect]
     Route: 048
  4. ADDERALL 10 [Concomitant]
     Route: 065
     Dates: start: 20040101
  5. ALLEGRA [Suspect]
     Route: 048
     Dates: start: 20030801, end: 20110312

REACTIONS (3)
  - BODY TEMPERATURE DECREASED [None]
  - LOSS OF CONSCIOUSNESS [None]
  - RESPIRATORY RATE DECREASED [None]
